FAERS Safety Report 10390978 (Version 2)
Quarter: 2014Q3

REPORT INFORMATION
  Report Type: Spontaneous
  Country: US (occurrence: US)
  Receive Date: 20140818
  Receipt Date: 20140818
  Transmission Date: 20150326
  Serious: Yes (Other)
  Sender: FDA-Public Use
  Company Number: US-PFIZER INC-2014188255

PATIENT
  Age: 45 Year
  Sex: Male

DRUGS (3)
  1. ATORVASTATIN CALCIUM. [Suspect]
     Active Substance: ATORVASTATIN CALCIUM
     Indication: HYPERLIPIDAEMIA
     Dosage: 40 MG, UNK
  2. LISINOPRIL AND HYDROCHLOROTHIAZIDE [Concomitant]
     Active Substance: HYDROCHLOROTHIAZIDE\LISINOPRIL
     Dosage: LISINOPRIL 20/HYDROCHLOROTHIAZIDE 25
  3. NIACIN. [Concomitant]
     Active Substance: NIACIN
     Indication: HIGH DENSITY LIPOPROTEIN DECREASED
     Dosage: UNK

REACTIONS (3)
  - Hepatitis [Recovered/Resolved]
  - Rhabdomyolysis [Recovered/Resolved]
  - Food interaction [Unknown]
